FAERS Safety Report 14539143 (Version 1)
Quarter: 2018Q1

REPORT INFORMATION
  Report Type: Spontaneous
  Country: US (occurrence: US)
  Receive Date: 20180214
  Receipt Date: 20180214
  Transmission Date: 20180509
  Serious: Yes (Other)
  Sender: FDA-Public Use
  Company Number: None

PATIENT
  Age: 73 Year
  Sex: Female
  Weight: 75.3 kg

DRUGS (1)
  1. GLATIRAMER MYLAN [Suspect]
     Active Substance: GLATIRAMER
     Route: 058
     Dates: start: 20180110, end: 20180214

REACTIONS (4)
  - Injection site mass [None]
  - Injection site bruising [None]
  - Injection site pain [None]
  - Injection site reaction [None]

NARRATIVE: CASE EVENT DATE: 20180213
